FAERS Safety Report 17256304 (Version 3)
Quarter: 2020Q1

REPORT INFORMATION
  Report Type: Report from Study
  Country: JP (occurrence: JP)
  Receive Date: 20200110
  Receipt Date: 20200312
  Transmission Date: 20200409
  Serious: Yes (Hospitalization, Other)
  Sender: FDA-Public Use
  Company Number: JP-ASTELLAS-2019JP000284

PATIENT
  Age: 39 Year
  Sex: Female
  Weight: 52 kg

DRUGS (34)
  1. FAMOTIDINE. [Concomitant]
     Active Substance: FAMOTIDINE
     Indication: PROPHYLAXIS
     Dosage: 20 MG/DAY, UNKNOWN FREQ.
     Route: 048
  2. VALACICLOVIR [Concomitant]
     Active Substance: VALACYCLOVIR HYDROCHLORIDE
     Indication: PROPHYLAXIS
     Dosage: 500 MG/DAY, UNKNOWN FREQ.
     Route: 048
  3. K-SUPPLY [Concomitant]
     Active Substance: POTASSIUM CHLORIDE
     Indication: HYPOKALAEMIA
     Dosage: 2400 MG/DAY, UNKNOWN FREQ.
     Route: 048
  4. AMBISOME [Concomitant]
     Active Substance: AMPHOTERICIN B
     Indication: FEBRILE NEUTROPENIA
     Dosage: 150 MG/DAY, UNKNOWN FREQ.
     Route: 065
     Dates: start: 20190102, end: 20190105
  5. LEUPLIN [Concomitant]
     Active Substance: LEUPROLIDE ACETATE
     Indication: PROPHYLAXIS
     Dosage: 1.88 MG/DAY, UNKNOWN FREQ.
     Route: 065
     Dates: start: 20190126, end: 20190126
  6. ITRACONAZOLE. [Concomitant]
     Active Substance: ITRACONAZOLE
     Indication: PROPHYLAXIS
     Dosage: 20 ML/DAY, UNKNOWN FREQ.
     Route: 048
     Dates: start: 20181229, end: 20190111
  7. TAKEPRON [Concomitant]
     Active Substance: LANSOPRAZOLE
     Indication: VOMITING
     Dosage: 60 MG/DAY, UNKNOWN FREQ.
     Route: 065
     Dates: start: 20190106, end: 20190109
  8. FEBURIC [Concomitant]
     Active Substance: FEBUXOSTAT
     Indication: PROPHYLAXIS
     Dosage: 40 MG/DAY, UNKNOWN FREQ.
     Route: 048
  9. FUNGUARD [Concomitant]
     Active Substance: MICAFUNGIN SODIUM
     Indication: PROPHYLAXIS
     Dosage: 50 MG/DAY, UNKNOWN FREQ.
     Route: 065
     Dates: start: 20190106
  10. FUROSEMIDE. [Concomitant]
     Active Substance: FUROSEMIDE
     Indication: PROPHYLAXIS
     Dosage: 20 MG/DAY, UNKNOWN FREQ.
     Route: 065
     Dates: start: 20181229, end: 20190104
  11. KCL [Concomitant]
     Active Substance: POTASSIUM CHLORIDE
     Indication: HYPOKALAEMIA
     Dosage: 20 MEQ/DAY, UNKNOWN FREQ.
     Route: 065
     Dates: start: 20181230, end: 20190112
  12. NEXIUM MUPS [ESOMEPRAZOLE MAGNESIUM] [Concomitant]
     Active Substance: ESOMEPRAZOLE MAGNESIUM
     Indication: PROPHYLAXIS
     Dosage: 20 MG/DAY, UNKNOWN FREQ.
     Route: 048
     Dates: start: 20190104
  13. SOSEGON [PENTAZOCINE] [Concomitant]
     Active Substance: PENTAZOCINE
     Indication: ABDOMINAL PAIN
     Dosage: 150 MG/DAY, UNKNOWN FREQ.
     Route: 065
     Dates: start: 20190105, end: 20190107
  14. ALLOID G [Concomitant]
     Active Substance: SODIUM ALGINATE
     Indication: VOMITING
     Dosage: 60 ML/DAY, UNKNOWN FREQ.
     Route: 048
     Dates: start: 20190105, end: 20190107
  15. LEVOFLOXACIN HEMIHYDRATE [Concomitant]
     Active Substance: LEVOFLOXACIN
     Indication: PROPHYLAXIS
     Dosage: 500 MG/DAY, UNKNOWN FREQ.
     Route: 048
     Dates: start: 20190110
  16. ASP2215 [Suspect]
     Active Substance: GILTERITINIB
     Route: 048
     Dates: start: 20190124, end: 20190217
  17. REBAMIPIDE [Concomitant]
     Active Substance: REBAMIPIDE
     Indication: PROPHYLAXIS
     Dosage: 300 MG/DAY, UNKNOWN FREQ.
     Route: 048
  18. URSO [Concomitant]
     Active Substance: URSODIOL
     Indication: HEPATIC ENZYME INCREASED
     Dosage: 300 MG/DAY, UNKNOWN FREQ.
     Route: 048
  19. MEROPENEM. [Concomitant]
     Active Substance: MEROPENEM
     Indication: PULMONARY MYCOSIS
     Dosage: 3 G/DAY, UNKNOWN FREQ.
     Route: 065
     Dates: start: 20190208, end: 20190322
  20. ALLOID G [Concomitant]
     Active Substance: SODIUM ALGINATE
     Indication: PROPHYLAXIS
  21. TSUMURA DAIKENCHUTO EXTRACT GRANULES FOR ETHICAL USE [Concomitant]
     Active Substance: HERBALS
     Indication: ABDOMINAL PAIN
     Dosage: 7.5 G/DAY, UNKNOWN FREQ.
     Route: 048
     Dates: start: 20190108, end: 20190111
  22. OSELTAMIVIR [Concomitant]
     Active Substance: OSELTAMIVIR
     Indication: PROPHYLAXIS
     Dosage: 75 MG/DAY, UNKNOWN FREQ.
     Route: 048
     Dates: start: 20190125, end: 20190131
  23. ASP2215 [Suspect]
     Active Substance: GILTERITINIB
     Indication: ACUTE MYELOID LEUKAEMIA REFRACTORY
     Route: 048
     Dates: start: 20181228, end: 20190123
  24. CUBICIN [Concomitant]
     Active Substance: DAPTOMYCIN
     Indication: FEBRILE NEUTROPENIA
     Dosage: 300 MG/DAY, UNKNOWN FREQ.
     Route: 065
  25. MIYA-BM [Concomitant]
     Active Substance: CLOSTRIDIUM BUTYRICUM SPORES STRAIN M-55
     Indication: PROPHYLAXIS
     Dosage: 3 G/DAY, UNKNOWN FREQ.
     Route: 048
  26. MEROPENEM. [Concomitant]
     Active Substance: MEROPENEM
     Indication: FEBRILE NEUTROPENIA
     Dosage: 3 G/DAY, UNKNOWN FREQ.
     Route: 065
  27. ATARAX-P [HYDROXYZINE EMBONATE] [Concomitant]
     Indication: ABDOMINAL PAIN
     Dosage: 25 MG/DAY, UNKNOWN FREQ.
     Route: 065
     Dates: start: 20190105, end: 20190107
  28. SOLU-CORTEF [Concomitant]
     Active Substance: HYDROCORTISONE SODIUM SUCCINATE
     Indication: FEBRILE NEUTROPENIA
     Dosage: 100 MG/DAY, UNKNOWN FREQ.
     Route: 065
  29. URSO [Concomitant]
     Active Substance: URSODIOL
     Dosage: 600 MG/DAY, UNKNOWN FREQ.
     Route: 048
     Dates: start: 20190112
  30. FUNGUARD [Concomitant]
     Active Substance: MICAFUNGIN SODIUM
     Indication: FEBRILE NEUTROPENIA
     Dosage: 50 MG/DAY, UNKNOWN FREQ.
     Route: 065
     Dates: start: 20181229, end: 20190101
  31. AMBISOME [Concomitant]
     Active Substance: AMPHOTERICIN B
     Indication: PULMONARY MYCOSIS
     Dosage: 120 MG/DAY, UNKNOWN FREQ.
     Route: 065
     Dates: start: 20190208, end: 20190314
  32. CONTOMIN [CHLORPROMAZINE HIBENZATE] [Concomitant]
     Indication: ABDOMINAL PAIN
     Dosage: 10 MG/DAY, UNKNOWN FREQ.
     Route: 030
     Dates: start: 20190106, end: 20190106
  33. CUBICIN [Concomitant]
     Active Substance: DAPTOMYCIN
     Indication: PULMONARY MYCOSIS
     Dosage: 300 MG/DAY, UNKNOWN FREQ.
     Route: 065
     Dates: start: 20190208, end: 20190307
  34. OXINORM [OXYCODONE HYDROCHLORIDE] [Concomitant]
     Active Substance: OXYCODONE HYDROCHLORIDE
     Indication: ABDOMINAL PAIN
     Route: 048
     Dates: start: 20190105, end: 20190111

REACTIONS (5)
  - Vomiting [Recovered/Resolved]
  - Lipase increased [Recovered/Resolved]
  - Pulmonary mycosis [Recovering/Resolving]
  - Blood lactate dehydrogenase increased [Recovered/Resolved]
  - Abdominal pain [Recovering/Resolving]

NARRATIVE: CASE EVENT DATE: 20190105
